FAERS Safety Report 12249278 (Version 1)
Quarter: 2016Q2

REPORT INFORMATION
  Report Type: Spontaneous
  Country: US (occurrence: US)
  Receive Date: 20160408
  Receipt Date: 20160408
  Transmission Date: 20160815
  Serious: No
  Sender: FDA-Public Use
  Company Number: US-ASTRAZENECA-2016SE18224

PATIENT
  Sex: Female

DRUGS (1)
  1. SYMBICORT [Suspect]
     Active Substance: BUDESONIDE\FORMOTEROL FUMARATE DIHYDRATE
     Dosage: DOSE AND FREQUENCY: UNKNOWN
     Route: 055

REACTIONS (6)
  - Insomnia [Unknown]
  - Depressed mood [Unknown]
  - Palpitations [Unknown]
  - Sleep disorder [Unknown]
  - Anxiety [Unknown]
  - Adverse event [Unknown]
